FAERS Safety Report 9894154 (Version 1)
Quarter: 2014Q1

REPORT INFORMATION
  Report Type: Spontaneous
  Country: US (occurrence: US)
  Receive Date: 20140213
  Receipt Date: 20140213
  Transmission Date: 20141002
  Serious: No
  Sender: FDA-Public Use
  Company Number: US-PFIZER INC-2014037782

PATIENT
  Age: 55 Year
  Sex: Female
  Weight: 68.03 kg

DRUGS (2)
  1. ADVIL [Suspect]
     Indication: MUSCLE STRAIN
     Dosage: 800 MG, THREE TIMES A DAY
     Dates: start: 20140204
  2. ADVIL [Suspect]
     Indication: TENDON INJURY

REACTIONS (3)
  - Eye swelling [Not Recovered/Not Resolved]
  - Joint swelling [Not Recovered/Not Resolved]
  - Local swelling [Not Recovered/Not Resolved]
